FAERS Safety Report 14650287 (Version 2)
Quarter: 2018Q2

REPORT INFORMATION
  Report Type: Report from Study
  Country: JP (occurrence: JP)
  Receive Date: 20180316
  Receipt Date: 20180410
  Transmission Date: 20180711
  Serious: Yes (Other)
  Sender: FDA-Public Use
  Company Number: PHJP2018JP005870

PATIENT
  Age: 67 Year
  Sex: Male

DRUGS (45)
  1. ARZERRA [Suspect]
     Active Substance: OFATUMUMAB
     Dosage: 2000 MG, QD
     Route: 041
     Dates: start: 20150320, end: 20150320
  2. ARZERRA [Suspect]
     Active Substance: OFATUMUMAB
     Dosage: 2000 MG, QD
     Route: 041
     Dates: start: 20150501, end: 20150501
  3. PREDNISOLONE. [Concomitant]
     Active Substance: PREDNISOLONE
     Dosage: 100 MG, UNK
     Route: 041
     Dates: start: 20150501
  4. BRUFEN [Concomitant]
     Active Substance: IBUPROFEN
     Dosage: 200 MG, UNK
     Route: 048
     Dates: start: 20150501
  5. POLARAMINE [Concomitant]
     Active Substance: DEXCHLORPHENIRAMINE MALEATE
     Dosage: 2 MG, UNK
     Route: 048
     Dates: start: 20150217
  6. POLARAMINE [Concomitant]
     Active Substance: DEXCHLORPHENIRAMINE MALEATE
     Dosage: 2 MG, UNK
     Route: 048
     Dates: start: 20150311
  7. ARZERRA [Suspect]
     Active Substance: OFATUMUMAB
     Dosage: 2000 MG, QD
     Route: 041
     Dates: start: 20150210, end: 20150210
  8. ARZERRA [Suspect]
     Active Substance: OFATUMUMAB
     Dosage: 2000 MG, QD
     Route: 041
     Dates: start: 20150406, end: 20150406
  9. ARZERRA [Suspect]
     Active Substance: OFATUMUMAB
     Dosage: 2000 MG, QD
     Route: 041
     Dates: start: 20150717, end: 20150717
  10. BRUFEN [Concomitant]
     Active Substance: IBUPROFEN
     Dosage: 200 MG, UNK
     Route: 048
     Dates: start: 20150210
  11. BRUFEN [Concomitant]
     Active Substance: IBUPROFEN
     Dosage: 200 MG, UNK
     Route: 048
     Dates: start: 20150529
  12. BRUFEN [Concomitant]
     Active Substance: IBUPROFEN
     Dosage: 200 MG, UNK
     Route: 048
     Dates: start: 20150717
  13. POLARAMINE [Concomitant]
     Active Substance: DEXCHLORPHENIRAMINE MALEATE
     Indication: PREMEDICATION
     Dosage: 2 MG, UNK
     Route: 048
     Dates: start: 20150127
  14. POLARAMINE [Concomitant]
     Active Substance: DEXCHLORPHENIRAMINE MALEATE
     Dosage: 2 MG, UNK
     Route: 048
     Dates: start: 20150529
  15. ARZERRA [Suspect]
     Active Substance: OFATUMUMAB
     Indication: CHRONIC LYMPHOCYTIC LEUKAEMIA
     Dosage: 300 MG, QD
     Route: 041
     Dates: start: 20150127, end: 20150127
  16. ARZERRA [Suspect]
     Active Substance: OFATUMUMAB
     Dosage: 2000 MG, QD
     Route: 041
     Dates: start: 20150217, end: 20150217
  17. ARZERRA [Suspect]
     Active Substance: OFATUMUMAB
     Dosage: 2000 MG, QD
     Route: 041
     Dates: start: 20150224, end: 20150224
  18. PREDNISOLONE. [Concomitant]
     Active Substance: PREDNISOLONE
     Indication: PREMEDICATION
     Dosage: 100 MG, UNK
     Route: 041
     Dates: start: 20150127
  19. PREDNISOLONE. [Concomitant]
     Active Substance: PREDNISOLONE
     Dosage: 100 MG, UNK
     Route: 041
     Dates: start: 20150210
  20. PREDNISOLONE. [Concomitant]
     Active Substance: PREDNISOLONE
     Dosage: 100 MG, UNK
     Route: 041
     Dates: start: 20150406
  21. POLARAMINE [Concomitant]
     Active Substance: DEXCHLORPHENIRAMINE MALEATE
     Dosage: 2 MG, UNK
     Route: 048
     Dates: start: 20150717
  22. ARZERRA [Suspect]
     Active Substance: OFATUMUMAB
     Dosage: 2000 MG, QD
     Route: 041
     Dates: start: 20150311, end: 20150311
  23. PREDNISOLONE. [Concomitant]
     Active Substance: PREDNISOLONE
     Dosage: 100 MG, UNK
     Route: 041
     Dates: start: 20150529
  24. BRUFEN [Concomitant]
     Active Substance: IBUPROFEN
     Indication: PREMEDICATION
     Dosage: 200 MG, UNK
     Route: 048
     Dates: start: 20150127
  25. POLARAMINE [Concomitant]
     Active Substance: DEXCHLORPHENIRAMINE MALEATE
     Dosage: 2 MG, UNK
     Route: 048
     Dates: start: 20150406
  26. ARZERRA [Suspect]
     Active Substance: OFATUMUMAB
     Dosage: 2000 MG, QD
     Route: 041
     Dates: start: 20150529, end: 20150529
  27. PREDNISOLONE. [Concomitant]
     Active Substance: PREDNISOLONE
     Dosage: 100 MG, UNK
     Route: 041
     Dates: start: 20150311
  28. BRUFEN [Concomitant]
     Active Substance: IBUPROFEN
     Dosage: 200 MG, UNK
     Route: 048
     Dates: start: 20150203
  29. BRUFEN [Concomitant]
     Active Substance: IBUPROFEN
     Dosage: 200 MG, UNK
     Route: 048
     Dates: start: 20150320
  30. POLARAMINE [Concomitant]
     Active Substance: DEXCHLORPHENIRAMINE MALEATE
     Dosage: 2 MG, UNK
     Route: 048
     Dates: start: 20150210
  31. ARZERRA [Suspect]
     Active Substance: OFATUMUMAB
     Dosage: 2000 MG, QD
     Route: 041
     Dates: start: 20150203, end: 20150203
  32. BRUFEN [Concomitant]
     Active Substance: IBUPROFEN
     Dosage: 200 MG, UNK
     Route: 048
     Dates: start: 20150311
  33. POLARAMINE [Concomitant]
     Active Substance: DEXCHLORPHENIRAMINE MALEATE
     Dosage: 2 MG, UNK
     Route: 048
     Dates: start: 20150501
  34. BARACLUDE [Concomitant]
     Active Substance: ENTECAVIR
     Indication: INFECTION PROPHYLAXIS
     Dosage: 0.25 MG, UNK
     Route: 065
  35. PREDNISOLONE. [Concomitant]
     Active Substance: PREDNISOLONE
     Dosage: 100 MG, UNK
     Route: 041
     Dates: start: 20150203
  36. PREDNISOLONE. [Concomitant]
     Active Substance: PREDNISOLONE
     Dosage: 100 MG, UNK
     Route: 041
     Dates: start: 20150717
  37. BRUFEN [Concomitant]
     Active Substance: IBUPROFEN
     Dosage: 200 MG, UNK
     Route: 048
     Dates: start: 20150217
  38. BRUFEN [Concomitant]
     Active Substance: IBUPROFEN
     Dosage: 200 MG, UNK
     Route: 048
     Dates: start: 20150406
  39. POLARAMINE [Concomitant]
     Active Substance: DEXCHLORPHENIRAMINE MALEATE
     Dosage: 2 MG, UNK
     Route: 048
     Dates: start: 20150203
  40. POLARAMINE [Concomitant]
     Active Substance: DEXCHLORPHENIRAMINE MALEATE
     Dosage: 2 MG, UNK
     Route: 048
     Dates: start: 20150320
  41. PREDNISOLONE. [Concomitant]
     Active Substance: PREDNISOLONE
     Dosage: 100 MG, UNK
     Route: 041
     Dates: start: 20150217
  42. PREDNISOLONE. [Concomitant]
     Active Substance: PREDNISOLONE
     Dosage: 100 MG, UNK
     Route: 041
     Dates: start: 20150224
  43. PREDNISOLONE. [Concomitant]
     Active Substance: PREDNISOLONE
     Dosage: 100 MG, UNK
     Route: 041
     Dates: start: 20150320
  44. BRUFEN [Concomitant]
     Active Substance: IBUPROFEN
     Dosage: 200 MG, UNK
     Route: 048
     Dates: start: 20150224
  45. POLARAMINE [Concomitant]
     Active Substance: DEXCHLORPHENIRAMINE MALEATE
     Dosage: 2 MG, UNK
     Route: 048
     Dates: start: 20150224

REACTIONS (5)
  - Hypoxia [Recovered/Resolved]
  - Chronic lymphocytic leukaemia [Unknown]
  - Hypoxia [Recovered/Resolved]
  - Hypoxia [Recovered/Resolved]
  - Malignant neoplasm progression [Unknown]

NARRATIVE: CASE EVENT DATE: 20150127
